FAERS Safety Report 19814292 (Version 1)
Quarter: 2021Q3

REPORT INFORMATION
  Report Type: Spontaneous
  Country: FR (occurrence: FR)
  Receive Date: 20210910
  Receipt Date: 20210910
  Transmission Date: 20211014
  Serious: Yes (Hospitalization)
  Sender: FDA-Public Use
  Company Number: FR-TEVA-2021-FR-1950273

PATIENT
  Age: 71 Year
  Sex: Female
  Weight: 88 kg

DRUGS (11)
  1. ATORVASTATIN [Suspect]
     Active Substance: ATORVASTATIN
     Indication: HYPERCHOLESTEROLAEMIA
     Dosage: 10 MG
     Route: 048
     Dates: start: 20200924, end: 20210817
  2. STRESAM [Concomitant]
     Active Substance: ETIFOXINE
     Dosage: 100 MILLIGRAM DAILY; 1?0?1
  3. ATORVASTATIN [Concomitant]
     Active Substance: ATORVASTATIN
     Dosage: 10 MILLIGRAM DAILY; 0?0?1
  4. FUROSEMIDE. [Concomitant]
     Active Substance: FUROSEMIDE
     Dosage: 20 MILLIGRAM DAILY;  1?0?0
  5. BISOPROLOL [Concomitant]
     Active Substance: BISOPROLOL
     Dosage: 1.25 MILLIGRAM DAILY; 1?0?0
  6. ISORYTHM  LP (DISOPYRAMIDE) [Concomitant]
     Dosage: 500 MILLIGRAM DAILY; 1?0?1
  7. XARELTO [Concomitant]
     Active Substance: RIVAROXABAN
     Dosage: 20 MILLIGRAM DAILY; 0?0?1
  8. FUROSEMIDE. [Suspect]
     Active Substance: FUROSEMIDE
     Indication: HYPERTENSION
     Dosage: 1 DOSAGE FORMS
     Route: 048
     Dates: start: 20210712, end: 20210817
  9. STRESAM, GELULE [Suspect]
     Active Substance: ETIFOXINE HYDROCHLORIDE
     Indication: ANXIETY
     Dosage: 1 DOSAGE FORMS
     Route: 048
     Dates: start: 20210712, end: 20210817
  10. BISOPROLOL (FUMARATE ACIDE DE) [Suspect]
     Active Substance: BISOPROLOL FUMARATE
     Indication: ATRIAL FIBRILLATION
     Dosage: 1.25 MG
     Route: 048
     Dates: start: 202104, end: 20210817
  11. DOLIPRANE [Concomitant]
     Active Substance: ACETAMINOPHEN
     Dosage: UNIT DOSE :1 GRAM,1 TO 3 / D

REACTIONS (3)
  - Normochromic normocytic anaemia [Not Recovered/Not Resolved]
  - Lymphopenia [Not Recovered/Not Resolved]
  - Agranulocytosis [Not Recovered/Not Resolved]

NARRATIVE: CASE EVENT DATE: 20210816
